FAERS Safety Report 23272642 (Version 2)
Quarter: 2023Q4

REPORT INFORMATION
  Report Type: Report from Study
  Country: US (occurrence: US)
  Receive Date: 20231207
  Receipt Date: 20231212
  Transmission Date: 20240109
  Serious: Yes (Death)
  Sender: FDA-Public Use
  Company Number: US-ABBVIE-5529144

PATIENT
  Sex: Male

DRUGS (1)
  1. HUMIRA [Suspect]
     Active Substance: ADALIMUMAB
     Indication: Rheumatoid arthritis
     Dosage: HUMIRA CITRATE FREE PEN, FORM STRENGTH: 40 MILLIGRAM
     Route: 058
     Dates: start: 20150301

REACTIONS (1)
  - Dementia [Fatal]
